FAERS Safety Report 23213024 (Version 1)
Quarter: 2023Q4

REPORT INFORMATION
  Report Type: Spontaneous
  Country: PT (occurrence: PT)
  Receive Date: 20231121
  Receipt Date: 20231121
  Transmission Date: 20240110
  Serious: Yes (Other)
  Sender: FDA-Public Use
  Company Number: None

PATIENT
  Age: 72 Year
  Sex: Male

DRUGS (5)
  1. CLARITHROMYCIN [Suspect]
     Active Substance: CLARITHROMYCIN
     Indication: Bacterial disease carrier
     Dosage: 1000 MILLIGRAM DAILY; 1 TABLET EVERY 12-12H
     Dates: start: 20230518, end: 20230518
  2. ESOMEPRAZOLE [Suspect]
     Active Substance: ESOMEPRAZOLE
     Indication: Bacterial disease carrier
     Dosage: 80 MILLIGRAM DAILY; 1 TABLET EVERY 12-12H
     Dates: start: 20230518, end: 20230518
  3. AMOXICILLIN [Suspect]
     Active Substance: AMOXICILLIN
     Indication: Bacterial disease carrier
     Dosage: 2000 MILLIGRAM DAILY; 1 TABLET EVERY 12-12H
     Dates: start: 20230518, end: 20230518
  4. METRONIDAZOLE [Suspect]
     Active Substance: METRONIDAZOLE
     Indication: Bacterial disease carrier
     Dosage: 500 MILLIGRAM DAILY; 1 TABLET EVERY 12-12H
     Dates: start: 20230518, end: 20230518
  5. SIMVASTATIN [Concomitant]
     Active Substance: SIMVASTATIN
     Indication: Product used for unknown indication

REACTIONS (2)
  - Rash maculo-papular [Recovered/Resolved]
  - Pruritus [Recovered/Resolved]

NARRATIVE: CASE EVENT DATE: 20230518
